FAERS Safety Report 5118689-0 (Version None)
Quarter: 2006Q3

REPORT INFORMATION
  Report Type: 
  Country: None (occurrence: None)
  Receive Date: 20060927
  Receipt Date: 20060918
  Transmission Date: 20061208
  Serious: Yes (Hospitalization)
  Sender: FDA-Public Use
  Company Number: HQWYE893123AUG06

PATIENT
  Age: 20 Year
  Sex: Male

DRUGS (6)
  1. RAPAMUNE [Suspect]
     Indication: PROPHYLAXIS AGAINST TRANSPLANT REJECTION
     Dosage: ORAL; 2MG 1X PER 1 DAY ORAL
     Route: 048
     Dates: start: 20060801, end: 20060101
  2. RAPAMUNE [Suspect]
     Indication: PROPHYLAXIS AGAINST TRANSPLANT REJECTION
     Dosage: ORAL; 2MG 1X PER 1 DAY ORAL
     Route: 048
     Dates: start: 20060613, end: 20060801
  3. CYCLOSPORINE [Concomitant]
  4. ATENOLOL [Concomitant]
  5. PRAZOSIN GITS [Concomitant]
  6. PREDNISOLONE [Concomitant]

REACTIONS (4)
  - BLOOD CREATININE INCREASED [None]
  - BLOOD UREA INCREASED [None]
  - DRUG TOXICITY [None]
  - THROMBOCYTOPENIA [None]
